FAERS Safety Report 8587406-4 (Version None)
Quarter: 2012Q3

REPORT INFORMATION
  Report Type: 
  Country: None (occurrence: None)
  Receive Date: 20120810
  Receipt Date: 20111010
  Transmission Date: 20120928
  Serious: No
  Sender: FDA-Public Use
  Company Number: US-ASTRAZENECA-2011SE61016

PATIENT
  Age: 57 Year
  Sex: Female
  Weight: 63.5 kg

DRUGS (4)
  1. MULTI-VITAMINS [Concomitant]
  2. ARIMIDEX [Suspect]
     Indication: BREAST CANCER
     Route: 048
     Dates: start: 20110601
  3. AQUIAVER [Concomitant]
     Indication: BONE DENSITY ABNORMAL
  4. CALCIUM [Concomitant]

REACTIONS (6)
  - PAIN IN EXTREMITY [None]
  - FATIGUE [None]
  - HOT FLUSH [None]
  - HYPOAESTHESIA [None]
  - CARPAL TUNNEL SYNDROME [None]
  - ARTHRALGIA [None]
